FAERS Safety Report 10639438 (Version 2)
Quarter: 2015Q1

REPORT INFORMATION
  Report Type: Spontaneous
  Country: AU (occurrence: AU)
  Receive Date: 20141209
  Receipt Date: 20150320
  Transmission Date: 20150720
  Serious: Yes (Life-Threatening, Hospitalization, Disabling, Other)
  Sender: FDA-Public Use
  Company Number: AU-ROCHE-1503102

PATIENT
  Age: 77 Year
  Sex: Female

DRUGS (5)
  1. ARIMIDEX [Concomitant]
     Active Substance: ANASTROZOLE
  2. LUCENTIS [Suspect]
     Active Substance: RANIBIZUMAB
     Indication: AGE-RELATED MACULAR DEGENERATION
     Route: 050
     Dates: start: 20120424, end: 20141003
  3. PREDNISOLONE. [Concomitant]
     Active Substance: PREDNISOLONE
  4. CARTIA (AUSTRALIA) [Concomitant]
  5. NOTEN [Concomitant]
     Active Substance: ATENOLOL

REACTIONS (18)
  - Subarachnoid haemorrhage [Unknown]
  - Sensory loss [Unknown]
  - Nausea [Unknown]
  - Headache [Unknown]
  - Haemorrhagic stroke [Unknown]
  - Motor dysfunction [Unknown]
  - Urinary tract infection [Unknown]
  - Cerebrovascular accident [Unknown]
  - Hemiparesis [Unknown]
  - Intraventricular haemorrhage [Unknown]
  - Vision blurred [Unknown]
  - Visual acuity reduced [Unknown]
  - Brain midline shift [Unknown]
  - Disorientation [Unknown]
  - Blindness cortical [Unknown]
  - Confusional state [Unknown]
  - Subdural haemorrhage [Unknown]
  - Aphasia [Unknown]
